FAERS Safety Report 5227418-1 (Version None)
Quarter: 2007Q1

REPORT INFORMATION
  Report Type: 
  Country: None (occurrence: None)
  Receive Date: 20070202
  Receipt Date: 20070130
  Transmission Date: 20070707
  Serious: Yes (Other)
  Sender: FDA-Public Use
  Company Number: FRWYE909020DEC06

PATIENT
  Sex: Female

DRUGS (1)
  1. ADVIL [Suspect]
     Indication: PHARYNGOLARYNGEAL PAIN
     Route: 048
     Dates: start: 20061203, end: 20061209

REACTIONS (2)
  - PEMPHIGOID [None]
  - TOXIC SKIN ERUPTION [None]
